FAERS Safety Report 25908458 (Version 1)
Quarter: 2025Q4

REPORT INFORMATION
  Report Type: Spontaneous
  Country: US (occurrence: US)
  Receive Date: 20251010
  Receipt Date: 20251010
  Transmission Date: 20260118
  Serious: No
  Sender: MERCK SHARP & DOHME LLC
  Company Number: US-009507513-2335861

PATIENT
  Age: 2 Month
  Sex: Female

DRUGS (1)
  1. ENFLONSIA [Suspect]
     Active Substance: CLESROVIMAB-CFOR
     Route: 050
     Dates: start: 202510, end: 202510

REACTIONS (1)
  - Injection site mass [Unknown]

NARRATIVE: CASE EVENT DATE: 20251001
